APPROVED DRUG PRODUCT: ACZONE
Active Ingredient: DAPSONE
Strength: 5%
Dosage Form/Route: GEL;TOPICAL
Application: N021794 | Product #001 | TE Code: AB
Applicant: ALMIRALL LLC
Approved: Jul 7, 2005 | RLD: Yes | RS: Yes | Type: RX